FAERS Safety Report 24386449 (Version 1)
Quarter: 2024Q4

REPORT INFORMATION
  Report Type: Spontaneous
  Country: TW (occurrence: TW)
  Receive Date: 20241002
  Receipt Date: 20241002
  Transmission Date: 20250114
  Serious: Yes (Other)
  Sender: UCB
  Company Number: TW-UCBSA-2024049025

PATIENT
  Age: 55 Year
  Sex: Male

DRUGS (2)
  1. BRIVIACT [Suspect]
     Active Substance: BRIVARACETAM
     Indication: Seizure
     Dosage: 100 MILLIGRAM, 2X/DAY (BID)
  2. LEVETIRACETAM [Suspect]
     Active Substance: LEVETIRACETAM
     Indication: Seizure
     Dosage: 1000 MILLIGRAM, 2X/DAY (BID) (DRUG DISCONTINUED)

REACTIONS (8)
  - Seizure [Unknown]
  - Bladder cancer [Unknown]
  - Aphasia [Unknown]
  - Somnolence [Recovered/Resolved]
  - Dizziness [Recovered/Resolved]
  - Haematuria [Unknown]
  - Clonus [Unknown]
  - Behaviour disorder [Unknown]
